FAERS Safety Report 17538307 (Version 2)
Quarter: 2020Q1

REPORT INFORMATION
  Report Type: Spontaneous
  Country: BE (occurrence: BE)
  Receive Date: 20200313
  Receipt Date: 20200320
  Transmission Date: 20200409
  Serious: Yes (Disabling, Other)
  Sender: FDA-Public Use
  Company Number: BE-PFIZER INC-2020103503

PATIENT
  Age: 64 Year
  Sex: Male

DRUGS (7)
  1. IMURAN [Suspect]
     Active Substance: AZATHIOPRINE
     Indication: ARTHRITIS
     Dosage: ALTERNATING 75/100 MG PER DAY
  2. CALCIUM CARBONATE. [Suspect]
     Active Substance: CALCIUM CARBONATE
     Indication: ARTHRITIS
     Dosage: 1 G, 1X/DAY
  3. CALCITROL [CALCITRIOL] [Suspect]
     Active Substance: CALCITRIOL
     Indication: ARTHRITIS
     Dosage: 0.25 UG, 1X/DAY
  4. MEDROL [Suspect]
     Active Substance: METHYLPREDNISOLONE
     Indication: ARTHRITIS
     Dosage: 4 MG, 1X/DAY
  5. FOSAMAX [Suspect]
     Active Substance: ALENDRONATE SODIUM
     Indication: OSTEOPOROSIS
     Dosage: 70 MG, WEEKLY
  6. LOFTYL [Suspect]
     Active Substance: BUFLOMEDIL HYDROCHLORIDE
     Indication: PERIPHERAL VASCULAR DISORDER
     Dosage: 600 MG, 1X/DAY
  7. PLAVIX [Suspect]
     Active Substance: CLOPIDOGREL BISULFATE
     Indication: PERIPHERAL VASCULAR DISORDER
     Dosage: 1 DF, DAILY

REACTIONS (2)
  - Arthralgia [Unknown]
  - Mycobacterium chelonae infection [Unknown]
